FAERS Safety Report 5196921-5 (Version None)
Quarter: 2006Q4

REPORT INFORMATION
  Report Type: 
  Country: None (occurrence: None)
  Receive Date: 20061227
  Receipt Date: 20061211
  Transmission Date: 20070319
  Serious: Yes (Hospitalization)
  Sender: FDA-Public Use
  Company Number: 2006153284

PATIENT
  Age: 79 Year
  Sex: Female

DRUGS (20)
  1. SU-011,248 (SUNITINIB MALATE) [Suspect]
     Indication: RENAL CELL CARCINOMA STAGE UNSPECIFIED
     Dosage: 25 MG (25 MG, 1 IN 1 D), ORAL
     Route: 048
     Dates: start: 20051021
  2. ACETAMINOPHEN [Concomitant]
  3. AMLODIPINE [Concomitant]
  4. RAMIPRIL [Concomitant]
  5. SIMVASTATIN [Concomitant]
  6. CYCLIZINE (CYCLIZINE) [Concomitant]
  7. LOPERAMIDE HCL [Concomitant]
  8. ERYTHROMYCIN [Concomitant]
  9. AMOXICILLIN [Concomitant]
  10. GAVISCON [Concomitant]
  11. METOCLOPRAMIDE [Concomitant]
  12. OMEPRAZOLE [Concomitant]
  13. MEBEVERINE (MEBEVERINE) [Concomitant]
  14. TRIMETHOPRIM [Concomitant]
  15. FYBOGEL (ISPAGHULA) [Concomitant]
  16. LOPERAMIDE HCL [Concomitant]
  17. CYCLIZINE (CYCLINE) [Concomitant]
  18. CORSODYL (CHLORHEXIDINE GLUCONATE) [Concomitant]
  19. LEVOTHYROXINE SODIUM [Concomitant]
  20. NITROFURANTOIN [Concomitant]

REACTIONS (1)
  - CONVULSION [None]
